FAERS Safety Report 7002700-6 (Version None)
Quarter: 2010Q3

REPORT INFORMATION
  Report Type: 
  Country: None (occurrence: None)
  Receive Date: 20100920
  Receipt Date: 20071120
  Transmission Date: 20110219
  Serious: Yes (Other)
  Sender: FDA-Public Use
  Company Number: US-ASTRAZENECA-2006UW08154

PATIENT
  Age: 8912 Day
  Sex: Female
  Weight: 103 kg

DRUGS (13)
  1. SEROQUEL [Suspect]
     Indication: BIPOLAR DISORDER
     Dosage: 50MG-75MG
     Route: 048
     Dates: start: 20050422
  2. SEROQUEL [Suspect]
     Indication: DEPRESSION
     Dosage: 50MG-75MG
     Route: 048
     Dates: start: 20050422
  3. SEROQUEL [Suspect]
     Indication: ANXIETY
     Dosage: 50MG-75MG
     Route: 048
     Dates: start: 20050422
  4. SEROQUEL [Suspect]
     Indication: SLEEP DISORDER
     Dosage: 50MG-75MG
     Route: 048
     Dates: start: 20050422
  5. SEROQUEL [Suspect]
     Indication: AFFECTIVE DISORDER
     Dosage: 50MG-75MG
     Route: 048
     Dates: start: 20050422
  6. SEROQUEL [Suspect]
     Route: 048
     Dates: start: 20050601, end: 20060101
  7. SEROQUEL [Suspect]
     Route: 048
     Dates: start: 20050601, end: 20060101
  8. SEROQUEL [Suspect]
     Route: 048
     Dates: start: 20050601, end: 20060101
  9. SEROQUEL [Suspect]
     Route: 048
     Dates: start: 20050601, end: 20060101
  10. SEROQUEL [Suspect]
     Route: 048
     Dates: start: 20050601, end: 20060101
  11. CELEXA [Concomitant]
     Indication: DEPRESSIVE SYMPTOM
     Dosage: STRENGTH- 20MG, 40MG  DOSE-20MG-40MG DAILY
     Route: 048
     Dates: start: 20030428
  12. LAMICTAL [Concomitant]
     Route: 048
     Dates: start: 20050422
  13. LITHIUM CARBONATE [Concomitant]
     Route: 048
     Dates: start: 20050124

REACTIONS (5)
  - DIABETES MELLITUS [None]
  - HYPERGLYCAEMIA [None]
  - TYPE 1 DIABETES MELLITUS [None]
  - TYPE 2 DIABETES MELLITUS [None]
  - VISION BLURRED [None]
